FAERS Safety Report 5843433-9 (Version None)
Quarter: 2008Q3

REPORT INFORMATION
  Report Type: 
  Country: None (occurrence: None)
  Receive Date: 20080808
  Receipt Date: 20080729
  Transmission Date: 20090109
  Serious: Yes (Life-Threatening, Hospitalization)
  Sender: FDA-Public Use
  Company Number: S08-FRA-01655-01

PATIENT
  Age: 31 Year
  Sex: Female

DRUGS (3)
  1. DINOPROSTONE (DINOPROSTONE) (10 MILLIGRAM, VAGINAL INSERT) [Suspect]
     Indication: LABOUR INDUCTION
     Dosage: 10 MG (10 MG, ONCE) ,VAGINAL
     Route: 067
     Dates: start: 20080417, end: 20080417
  2. AMOXICILLIN [Concomitant]
  3. ECONAZOLE NITRATE [Concomitant]

REACTIONS (9)
  - CAESAREAN SECTION [None]
  - DRUG EXPOSURE DURING PREGNANCY [None]
  - FOETAL DISTRESS SYNDROME [None]
  - HAEMORRHAGE [None]
  - INTRA-UTERINE DEATH [None]
  - PERITONEAL HAEMORRHAGE [None]
  - STILLBIRTH [None]
  - UTERINE LEIOMYOMA [None]
  - UTERINE RUPTURE [None]
